FAERS Safety Report 13582448 (Version 1)
Quarter: 2017Q2

REPORT INFORMATION
  Report Type: Report from Study
  Country: US (occurrence: US)
  Receive Date: 20170525
  Receipt Date: 20170525
  Transmission Date: 20170830
  Serious: Yes (Other)
  Sender: FDA-Public Use
  Company Number: US-ASTRAZENECA-2017SE53493

PATIENT
  Age: 70 Year
  Sex: Male
  Weight: 85.3 kg

DRUGS (14)
  1. METFORMIN [Concomitant]
     Active Substance: METFORMIN HYDROCHLORIDE
     Dosage: 500MG-100MG
  2. MULTIVITAMIN [Concomitant]
     Active Substance: VITAMINS
  3. LUPRON [Concomitant]
     Active Substance: LEUPROLIDE ACETATE
     Dosage: 22.5MG EVERY 12 WEEKS
  4. DENOSUMAB [Concomitant]
     Active Substance: DENOSUMAB
     Dosage: 120MG EVERY 12 WEEK
  5. OLAPARIB [Suspect]
     Active Substance: OLAPARIB
     Indication: PROSTATE CANCER
     Route: 048
     Dates: start: 20170309, end: 20170425
  6. MELOXICAM. [Concomitant]
     Active Substance: MELOXICAM
  7. MEDI4736 [Suspect]
     Active Substance: DURVALUMAB
     Indication: PROSTATE CANCER
     Route: 042
     Dates: start: 20170309
  8. CRESTOR [Concomitant]
     Active Substance: ROSUVASTATIN CALCIUM
     Dosage: 40MG
  9. CTZ [Concomitant]
     Dosage: 25MG
  10. COLACE [Concomitant]
     Active Substance: DOCUSATE SODIUM
  11. VITAMIN D3 [Concomitant]
     Active Substance: CHOLECALCIFEROL
     Dosage: 5000IU DAILY
  12. OLAPARIB [Suspect]
     Active Substance: OLAPARIB
     Indication: PROSTATE CANCER
     Route: 048
     Dates: start: 20170504
  13. FISH OIL [Concomitant]
     Active Substance: FISH OIL
  14. IBUPROFEN. [Concomitant]
     Active Substance: IBUPROFEN

REACTIONS (1)
  - Arthritis [Unknown]

NARRATIVE: CASE EVENT DATE: 20170502
